APPROVED DRUG PRODUCT: VINORELBINE TARTRATE
Active Ingredient: VINORELBINE TARTRATE
Strength: EQ 10MG BASE/ML
Dosage Form/Route: INJECTABLE;INJECTION
Application: A078011 | Product #001 | TE Code: AP
Applicant: ACTAVIS TOTOWA LLC
Approved: Jul 22, 2009 | RLD: No | RS: No | Type: RX